FAERS Safety Report 4957781-8 (Version None)
Quarter: 2006Q1

REPORT INFORMATION
  Report Type: 
  Country: None (occurrence: None)
  Receive Date: 20060324
  Receipt Date: 20060317
  Transmission Date: 20060701
  Serious: Yes (Death)
  Sender: FDA-Public Use
  Company Number: J081-002-002206

PATIENT
  Age: 89 Year
  Sex: Male

DRUGS (8)
  1. ARICEPT [Suspect]
     Indication: DEMENTIA
     Dosage: 3 MG, 1 IN 1 D; ORAL; 5MG, 1 IN 1 D, ORAL
     Route: 048
     Dates: start: 20060118, end: 20060125
  2. ARICEPT [Suspect]
     Indication: DEMENTIA
     Dosage: 3 MG, 1 IN 1 D; ORAL; 5MG, 1 IN 1 D, ORAL
     Route: 048
     Dates: start: 20060126, end: 20060303
  3. PHENYTOIN [Concomitant]
  4. PHENOBARBITAL TAB [Concomitant]
  5. SYMMETREL [Concomitant]
  6. SEPAMIT-R (NIFEDIPINE) [Concomitant]
  7. DIOVAN [Concomitant]
  8. GABALON (BACLOFEN) [Concomitant]

REACTIONS (4)
  - PNEUMONIA [None]
  - RESPIRATORY DISORDER [None]
  - SUDDEN DEATH [None]
  - TREMOR [None]
